FAERS Safety Report 9290067 (Version 2)
Quarter: 2013Q1

REPORT INFORMATION
  Report Type: Spontaneous
  Country: CA (occurrence: None)
  Receive Date: 20121130
  Receipt Date: 20121220
  Transmission Date: 20140127
  Serious: Yes (Other)
  Sender: FDA-Public Use
  Company Number: CA-010089

PATIENT
  Age: 75 Year
  Sex: Male

DRUGS (5)
  1. DEGARELIX (FIRMAGON) [Suspect]
     Indication: PROSTATE CANCER
     Route: 058
     Dates: start: 20121003, end: 20121003
  2. TELMISARTAN [Concomitant]
  3. B12 VITAMIN STAR [Concomitant]
  4. FOLIC ACID [Concomitant]
  5. ASA [Concomitant]

REACTIONS (3)
  - Abdominal pain [None]
  - Constipation [None]
  - Injection site erythema [None]
